FAERS Safety Report 5986673-0 (Version None)
Quarter: 2008Q4

REPORT INFORMATION
  Report Type: 
  Country: None (occurrence: None)
  Receive Date: 20081209
  Receipt Date: 20080806
  Transmission Date: 20090506
  Serious: Yes (Hospitalization)
  Sender: FDA-Public Use
  Company Number: US-BAYER-200810660BCC

PATIENT
  Age: 41 Year
  Sex: Female
  Weight: 91 kg

DRUGS (3)
  1. ALEVE (CAPLET) [Suspect]
     Indication: HEADACHE
     Dosage: AS USED: 220-880 MG  UNIT DOSE: 220 MG
     Route: 048
     Dates: start: 20080204, end: 20080207
  2. ALEVE (CAPLET) [Suspect]
     Dosage: AS USED: 440 MG  UNIT DOSE: 20 MG
     Route: 048
     Dates: start: 20070301
  3. LEVOXYL [Concomitant]

REACTIONS (7)
  - EYE PRURITUS [None]
  - HYPERSENSITIVITY [None]
  - OEDEMA MOUTH [None]
  - OEDEMA PERIPHERAL [None]
  - ORAL PRURITUS [None]
  - PRURITUS [None]
  - VOMITING [None]
